FAERS Safety Report 15160543 (Version 4)
Quarter: 2019Q3

REPORT INFORMATION
  Report Type: Report from Study
  Country: US (occurrence: US)
  Receive Date: 20180718
  Receipt Date: 20190924
  Transmission Date: 20191004
  Serious: Yes (Hospitalization)
  Sender: FDA-Public Use
  Company Number: US-ACTELION-A-NJ2017-163654

PATIENT
  Sex: Female
  Weight: 49.89 kg

DRUGS (3)
  1. SILDENAFIL. [Concomitant]
     Active Substance: SILDENAFIL
  2. OPSUMIT [Suspect]
     Active Substance: MACITENTAN
     Indication: PULMONARY HYPERTENSION
     Dosage: 10 MG, QD
     Route: 048
  3. TYVASO [Concomitant]
     Active Substance: TREPROSTINIL

REACTIONS (13)
  - Bacterial infection [Unknown]
  - Unevaluable event [Unknown]
  - Malaise [Unknown]
  - Drooling [Unknown]
  - Vomiting [Unknown]
  - Oropharyngeal pain [Unknown]
  - General physical health deterioration [Unknown]
  - Nasopharyngitis [Unknown]
  - Hospitalisation [Unknown]
  - Weight decreased [Unknown]
  - Anal incontinence [Unknown]
  - Scleroderma [Unknown]
  - Cough [Unknown]
